FAERS Safety Report 10534195 (Version 1)
Quarter: 2014Q4

REPORT INFORMATION
  Report Type: Spontaneous
  Country: US (occurrence: None)
  Receive Date: 20141021
  Receipt Date: 20141021
  Transmission Date: 20150529
  Serious: Yes (Hospitalization)
  Sender: FDA-Public Use
  Company Number: None

PATIENT
  Age: 68 Year
  Sex: Male
  Weight: 87.5 kg

DRUGS (2)
  1. TAXOL [Suspect]
     Active Substance: PACLITAXEL
     Dosage: TOLERATED TREATMENT WELL
     Dates: end: 20140929
  2. CARBOPLATIN. [Suspect]
     Active Substance: CARBOPLATIN
     Dosage: TOLERATED TREATMENT WELL.
     Dates: end: 20140926

REACTIONS (2)
  - Pyrexia [None]
  - Escherichia urinary tract infection [None]

NARRATIVE: CASE EVENT DATE: 20141005
